FAERS Safety Report 8897748 (Version 1)
Quarter: 2012Q4

REPORT INFORMATION
  Report Type: 
  Country: US (occurrence: US)
  Receive Date: 20121109
  Receipt Date: 20121109
  Transmission Date: 20130627
  Serious: Yes (Disabling, Other)
  Sender: FDA-Public Use
  Company Number: US-ELI_LILLY_AND_COMPANY-US201210010111

PATIENT
  Age: 56 Year
  Sex: Male

DRUGS (2)
  1. HUMALOG LISPRO [Suspect]
     Indication: DIABETES MELLITUS
     Dosage: UNK, tid
  2. LANTUS [Concomitant]

REACTIONS (3)
  - Cerebrovascular accident [Recovered/Resolved with Sequelae]
  - Aphasia [Unknown]
  - Malaise [Unknown]
